FAERS Safety Report 24777205 (Version 2)
Quarter: 2024Q4

REPORT INFORMATION
  Report Type: Spontaneous
  Country: US (occurrence: US)
  Receive Date: 20241226
  Receipt Date: 20241231
  Transmission Date: 20250115
  Serious: No
  Sender: TAKEDA
  Company Number: US-TAKEDA-2024TUS129138

PATIENT
  Sex: Male
  Weight: 75 kg

DRUGS (1)
  1. ENTYVIO [Suspect]
     Active Substance: VEDOLIZUMAB
     Indication: Colitis ulcerative
     Dosage: UNK

REACTIONS (10)
  - Illness [Unknown]
  - Bone pain [Unknown]
  - Gastrointestinal infection [Unknown]
  - Chest pain [Unknown]
  - Alanine aminotransferase increased [Unknown]
  - Aspartate aminotransferase increased [Unknown]
  - Chills [Unknown]
  - Erythema [Unknown]
  - Pyrexia [Unknown]
  - Incorrect drug administration rate [Unknown]
